FAERS Safety Report 5956982-X (Version None)
Quarter: 2008Q4

REPORT INFORMATION
  Report Type: 
  Country: None (occurrence: None)
  Receive Date: 20081117
  Receipt Date: 20081117
  Transmission Date: 20090506
  Serious: Yes (Hospitalization)
  Sender: FDA-Public Use
  Company Number: None

PATIENT
  Age: 53 Year
  Sex: Female
  Weight: 80.2 kg

DRUGS (1)
  1. DILANTIN [Suspect]
     Indication: CONVULSION
     Dosage: 300MG AT BEDTIME PO
     Route: 048
     Dates: start: 20080813, end: 20080902

REACTIONS (6)
  - DYSPNOEA [None]
  - ERYTHEMA MULTIFORME [None]
  - HYPERSENSITIVITY [None]
  - HYPOKALAEMIA [None]
  - STEVENS-JOHNSON SYNDROME [None]
  - WHEEZING [None]
